FAERS Safety Report 21564941 (Version 5)
Quarter: 2022Q4

REPORT INFORMATION
  Report Type: Spontaneous
  Country: DE (occurrence: DE)
  Receive Date: 20221108
  Receipt Date: 20221230
  Transmission Date: 20230112
  Serious: Yes (Other)
  Sender: FDA-Public Use
  Company Number: DE-ROCHE-3213681

PATIENT
  Age: 41 Year
  Sex: Male

DRUGS (11)
  1. RITUXIMAB [Suspect]
     Active Substance: RITUXIMAB
     Indication: Diffuse large B-cell lymphoma
     Dosage: 1ST LINE THERAPY, R-CHOP
     Route: 041
     Dates: start: 20210101, end: 20210501
  2. RITUXIMAB [Suspect]
     Active Substance: RITUXIMAB
     Dosage: 2ND LINE THERAPY R-GDP
     Route: 042
     Dates: start: 20211101, end: 20220201
  3. RITUXIMAB [Suspect]
     Active Substance: RITUXIMAB
     Dosage: 4TH LINE, POLATUZUMAB-VEDOTIN, BENDAMUSTIN, RITUXIMAB, VENETOCLAX
     Route: 042
     Dates: start: 20220719, end: 20220801
  4. TAFASITAMAB-CXIX [Suspect]
     Active Substance: TAFASITAMAB-CXIX
     Indication: Diffuse large B-cell lymphoma
     Dosage: 5TH LINE, CYCLOPHOSPHAMIDE AND TAFASITAMAB
     Route: 065
     Dates: start: 20220819, end: 20221025
  5. CYCLOPHOSPHAMIDE [Suspect]
     Active Substance: CYCLOPHOSPHAMIDE
     Indication: Diffuse large B-cell lymphoma
     Dosage: 3RD LINE, ALLO-SCT MSD CONDITIONIONING: FLUDARABINE, CYCLOPHOSPHAMIDE, THIOTEPA
     Route: 065
     Dates: start: 20220208, end: 20220213
  6. CYCLOPHOSPHAMIDE [Suspect]
     Active Substance: CYCLOPHOSPHAMIDE
     Dosage: 5TH LINE, CYCLOPHOSPHAMIDE AND TAFASITAMAB
     Route: 065
     Dates: start: 20220819, end: 20221025
  7. THIOTEPA [Suspect]
     Active Substance: THIOTEPA
     Indication: Diffuse large B-cell lymphoma
     Dosage: 3RD LINE, ALLO-SCT MSD CONDITIONIONING: FLUDARABINE, CYCLOPHOSPHAMIDE, THIOTEPA
     Route: 065
     Dates: start: 20220208, end: 20220213
  8. POLATUZUMAB VEDOTIN [Suspect]
     Active Substance: POLATUZUMAB VEDOTIN
     Indication: Diffuse large B-cell lymphoma
     Dosage: 4TH LINE, POLATUZUMAB-VEDOTIN, BENDAMUSTIN, RITUXIMAB, VENETOCLAX
     Route: 065
     Dates: start: 20220719, end: 20220801
  9. VENETOCLAX [Suspect]
     Active Substance: VENETOCLAX
     Indication: Diffuse large B-cell lymphoma
     Dosage: 4TH LINE, POLATUZUMAB-VEDOTIN, BENDAMUSTIN, RITUXIMAB, VENETOCLAX
     Route: 065
     Dates: start: 20220719, end: 20220801
  10. FLUDARABINE [Suspect]
     Active Substance: FLUDARABINE PHOSPHATE
     Indication: Diffuse large B-cell lymphoma
     Dosage: 3RD LINE, ALLO-SCT MSD CONDITIONIONING: FLUDARABINE, CYCLOPHOSPHAMIDE, THIOTEPA
     Route: 065
     Dates: start: 20220208, end: 20220213
  11. BENDAMUSTINE [Suspect]
     Active Substance: BENDAMUSTINE
     Indication: Diffuse large B-cell lymphoma
     Dosage: 4TH LINE, POLATUZUMAB-VEDOTIN, BENDAMUSTIN, RITUXIMAB, VENETOCLAX
     Route: 065
     Dates: start: 20220719, end: 20220801

REACTIONS (4)
  - Cytomegalovirus infection [Recovering/Resolving]
  - Thrombotic microangiopathy [Not Recovered/Not Resolved]
  - Renal failure [Not Recovered/Not Resolved]
  - Lymphoma [Not Recovered/Not Resolved]

NARRATIVE: CASE EVENT DATE: 20220101
